FAERS Safety Report 9783718 (Version 1)
Quarter: 2013Q4

REPORT INFORMATION
  Report Type: Spontaneous
  Country: FR (occurrence: None)
  Receive Date: 20131223
  Receipt Date: 20131223
  Transmission Date: 20140711
  Serious: Yes (Hospitalization)
  Sender: FDA-Public Use
  Company Number: 1944767

PATIENT
  Age: 2 Year
  Sex: Male
  Weight: 10 kg

DRUGS (7)
  1. CARBOPLATIN [Suspect]
     Indication: NEPHROBLASTOMA
     Dosage: 150 MG MILLIGRAMS, 1 DAY, INTRAVENOUS (NOT OTHERWISE SPECIFIED)
     Route: 042
     Dates: start: 20111107, end: 20111108
  2. HOLOXAN [Suspect]
     Indication: NEPHROBLASTOMA
     Dosage: 36 MG MILLIGRAMS, 1 DAY, INTRAVEVNOUS (NOT OTHERWISE SPECIFIED)?
     Route: 042
     Dates: start: 20111107, end: 20111108
  3. ETOPOSIDE [Suspect]
     Indication: NEPHROBLASTOMA
     Dosage: 36 MG MILLIGRAMS, 1 DAY, INTRAVENOUS (NOT OTHERWISE SPECIFEID)
     Route: 042
     Dates: start: 20111107, end: 20111108
  4. ACEBUTOLOL [Concomitant]
  5. METOPIMAZINE [Concomitant]
  6. PARACETAMOL [Concomitant]
  7. NALBUPHINE [Concomitant]

REACTIONS (2)
  - Renal tubular disorder [None]
  - Hyponatraemia [None]
